FAERS Safety Report 8610888 (Version 4)
Quarter: 2013Q3

REPORT INFORMATION
  Report Type: Report from Study
  Country: US (occurrence: US)
  Receive Date: 20120612
  Receipt Date: 20130807
  Transmission Date: 20140515
  Serious: Yes (Hospitalization)
  Sender: FDA-Public Use
  Company Number: US-ACTELION-A-NJ2012-66784

PATIENT
  Age: 78 Year
  Sex: Female

DRUGS (9)
  1. TRACLEER [Suspect]
     Indication: PULMONARY ARTERIAL HYPERTENSION
     Dosage: UNK
     Route: 048
  2. COUMADIN [Concomitant]
  3. COREG [Concomitant]
  4. NEXIUM [Concomitant]
  5. LISINOPRIL [Concomitant]
  6. TYLENOL [Concomitant]
  7. HYDROCODONE [Concomitant]
  8. FOLBEE PLUS [Concomitant]
  9. MEGACE [Concomitant]

REACTIONS (2)
  - Arteriovenous fistula site complication [Recovering/Resolving]
  - Fatigue [Not Recovered/Not Resolved]
